APPROVED DRUG PRODUCT: NAPROXEN SODIUM
Active Ingredient: NAPROXEN SODIUM
Strength: EQ 200MG BASE
Dosage Form/Route: CAPSULE;ORAL
Application: N021920 | Product #001
Applicant: BIONPHARMA INC
Approved: Feb 17, 2006 | RLD: Yes | RS: Yes | Type: OTC

PATENTS:
Patent 10028925 | Expires: Mar 3, 2026
Patent 10022344 | Expires: Mar 3, 2026
Patent 10028925 | Expires: Mar 3, 2026
Patent 10022344 | Expires: Mar 3, 2026
Patent 11090280 | Expires: Mar 3, 2026
Patent 11090280 | Expires: Mar 3, 2026
Patent 9693979 | Expires: Mar 3, 2026
Patent 9693978 | Expires: Mar 3, 2026